FAERS Safety Report 17745212 (Version 1)
Quarter: 2020Q2

REPORT INFORMATION
  Report Type: Spontaneous
  Country: US (occurrence: US)
  Receive Date: 20200504
  Receipt Date: 20200504
  Transmission Date: 20200714
  Serious: No
  Sender: FDA-Public Use
  Company Number: US-ASTRAZENECA-2020SE55481

PATIENT
  Age: 21886 Day
  Sex: Male
  Weight: 95.7 kg

DRUGS (3)
  1. LANTUS [Concomitant]
     Active Substance: INSULIN GLARGINE
     Indication: TYPE 1 DIABETES MELLITUS
     Route: 065
  2. INSULIN [Concomitant]
     Active Substance: INSULIN NOS
     Indication: TYPE 1 DIABETES MELLITUS
  3. BYDUREON BCISE [Suspect]
     Active Substance: EXENATIDE
     Indication: HUNGER
     Route: 058

REACTIONS (6)
  - Weight decreased [Unknown]
  - Product dose omission [Unknown]
  - Device issue [Unknown]
  - Incorrect dose administered by device [Unknown]
  - Tenderness [Unknown]
  - Swelling [Unknown]

NARRATIVE: CASE EVENT DATE: 20200412
